FAERS Safety Report 14675252 (Version 6)
Quarter: 2018Q4

REPORT INFORMATION
  Report Type: Spontaneous
  Country: GB (occurrence: GB)
  Receive Date: 20180323
  Receipt Date: 20181227
  Transmission Date: 20190204
  Serious: Yes (Death, Life-Threatening, Hospitalization, Other)
  Sender: FDA-Public Use
  Company Number: GB-SA-2018SA082873

PATIENT
  Age: 72 Year
  Sex: Male

DRUGS (20)
  1. SEPTRIN [Concomitant]
     Active Substance: SULFAMETHOXAZOLE\TRIMETHOPRIM
     Indication: PNEUMOCYSTIS JIROVECII PNEUMONIA
     Dosage: 960 MG,QID
     Route: 042
     Dates: start: 20180117, end: 20180129
  2. PREDNISOLONE. [Suspect]
     Active Substance: PREDNISOLONE
     Dosage: 90 MG, QD
     Route: 048
     Dates: start: 20180805
  3. METHYLPREDNISOLONE SODIUM SUCCINATE. [Suspect]
     Active Substance: METHYLPREDNISOLONE SODIUM SUCCINATE
     Indication: PNEUMONITIS
     Dosage: 80-500MG DAILY
     Route: 042
     Dates: start: 20180117, end: 20180205
  4. CYCLIZINE [Concomitant]
     Active Substance: CYCLIZINE
     Indication: NAUSEA
     Dosage: 50 MG,TID
     Route: 048
     Dates: start: 20180127
  5. SALBUTAMOL [Concomitant]
     Active Substance: ALBUTEROL
     Indication: DYSPNOEA
     Dosage: 5 MG,QID
     Route: 055
     Dates: start: 20180120
  6. APIXABAN [Suspect]
     Active Substance: APIXABAN
     Indication: THROMBOPHLEBITIS SUPERFICIAL
     Dosage: UNK UNK,UNK
     Route: 007
  7. LEVOTHYROXINE. [Concomitant]
     Active Substance: LEVOTHYROXINE
     Indication: HYPOTHYROIDISM
     Dosage: 50 UG,QD
     Route: 048
  8. CLEXANE [Suspect]
     Active Substance: ENOXAPARIN SODIUM
     Dosage: 150 MG, QD
     Route: 058
     Dates: start: 20180207
  9. CARBOCISTEINE [Concomitant]
     Active Substance: CARBOCYSTEINE
     Indication: SECRETION DISCHARGE
     Dosage: 750 MG,TID
     Route: 048
     Dates: start: 20180120
  10. CLEXANE [Suspect]
     Active Substance: ENOXAPARIN SODIUM
     Indication: THROMBOSIS
     Dosage: 150 MG,QD
     Route: 058
     Dates: start: 20180207
  11. PREDNISOLONE. [Suspect]
     Active Substance: PREDNISOLONE
     Indication: PNEUMONITIS
     Dosage: 90 MG, 1X/DAY
     Route: 048
     Dates: start: 20180206, end: 20180209
  12. MYCOPHENOLATE MOFETIL. [Concomitant]
     Active Substance: MYCOPHENOLATE MOFETIL
     Indication: PNEUMONITIS
     Dosage: 1 G,BID
     Route: 048
     Dates: start: 20180205
  13. METHYLPREDNISOLONE. [Suspect]
     Active Substance: METHYLPREDNISOLONE
     Indication: PNEUMONITIS
     Dosage: 1 G, BID
     Route: 048
     Dates: start: 20180205
  14. AVELUMAB [Suspect]
     Active Substance: AVELUMAB
     Indication: HODGKIN^S DISEASE
     Dosage: 350 MG,QOW
     Route: 041
     Dates: start: 20161123, end: 20161123
  15. RANITIDINE. [Concomitant]
     Active Substance: RANITIDINE
     Indication: PRODUCT USED FOR UNKNOWN INDICATION
     Dosage: 150 MG,BID
     Route: 048
     Dates: start: 20180125
  16. PREDNISONE. [Concomitant]
     Active Substance: PREDNISONE
     Indication: PNEUMONITIS
     Dosage: 90 MG,QD
     Route: 048
     Dates: start: 20180205
  17. APIXABAN [Suspect]
     Active Substance: APIXABAN
     Indication: EMBOLISM VENOUS
     Dosage: UNK
     Route: 065
  18. SEPTRIN [Concomitant]
     Active Substance: SULFAMETHOXAZOLE\TRIMETHOPRIM
     Indication: PROPHYLAXIS
     Dosage: 960 MG,BID
     Route: 048
     Dates: start: 20180129
  19. AVELUMAB [Suspect]
     Active Substance: AVELUMAB
     Dosage: 350 MG,QOW
     Route: 041
     Dates: start: 20180117, end: 20180117
  20. POSACONAZOLE [Concomitant]
     Active Substance: POSACONAZOLE
     Indication: PROPHYLAXIS
     Dosage: 300 MG,QD
     Route: 048
     Dates: start: 20180208

REACTIONS (5)
  - Respiratory disorder [Unknown]
  - Pneumonitis [Fatal]
  - Duodenal ulcer haemorrhage [Recovered/Resolved]
  - Contraindicated product administered [Unknown]
  - Duodenal perforation [Fatal]

NARRATIVE: CASE EVENT DATE: 20180209
